FAERS Safety Report 10888552 (Version 2)
Quarter: 2015Q2

REPORT INFORMATION
  Report Type: Spontaneous
  Country: IT (occurrence: IT)
  Receive Date: 20150305
  Receipt Date: 20150617
  Transmission Date: 20150821
  Serious: Yes (Hospitalization)
  Sender: FDA-Public Use
  Company Number: IT-ASTRAZENECA-2015SE18560

PATIENT
  Age: 24977 Day
  Sex: Female

DRUGS (9)
  1. ROCEFIN [Concomitant]
     Active Substance: CEFTRIAXONE SODIUM
  2. CARVEDILOLO ACTAVIS [Concomitant]
  3. NAROPINA [Suspect]
     Active Substance: ROPIVACAINE HYDROCHLORIDE
     Indication: POSTOPERATIVE ANALGESIA
     Dosage: 100 ML INSTEAD OF 10 ML IN TWO HOURS
     Route: 008
     Dates: start: 20150118, end: 20150118
  4. VYTORIN [Concomitant]
     Active Substance: EZETIMIBE\SIMVASTATIN
  5. CLEXANE [Concomitant]
     Active Substance: ENOXAPARIN SODIUM
     Dosage: 4.000 I.U. AXA / 0.4ML
  6. CALCIUM GLUCONATE. [Concomitant]
     Active Substance: CALCIUM GLUCONATE
  7. ZOFRAN [Concomitant]
     Active Substance: ONDANSETRON HYDROCHLORIDE
  8. DIUREMID [Concomitant]
  9. ANTRA [Concomitant]
     Active Substance: OMEPRAZOLE

REACTIONS (6)
  - Asthenia [Recovered/Resolved]
  - Incorrect dose administered [Recovered/Resolved]
  - Drug administration error [Recovered/Resolved]
  - Dysarthria [Recovered/Resolved]
  - Dyspnoea [Recovered/Resolved]
  - Hypoaesthesia [Recovered/Resolved]

NARRATIVE: CASE EVENT DATE: 20150118
